FAERS Safety Report 21990830 (Version 1)
Quarter: 2023Q1

REPORT INFORMATION
  Report Type: Spontaneous
  Country: US (occurrence: None)
  Receive Date: 20230213
  Receipt Date: 20230213
  Transmission Date: 20230418
  Serious: Yes (Death)
  Sender: FDA-Public Use
  Company Number: None

PATIENT
  Age: 41 Year
  Sex: Male

DRUGS (1)
  1. LOPERAMIDE [Suspect]
     Active Substance: LOPERAMIDE

REACTIONS (5)
  - Sudden death [None]
  - Euphoric mood [None]
  - Intentional product use issue [None]
  - Drug abuse [None]
  - Drug monitoring procedure not performed [None]

NARRATIVE: CASE EVENT DATE: 20221110
